FAERS Safety Report 4884265-8 (Version None)
Quarter: 2005Q4

REPORT INFORMATION
  Report Type: 
  Country: None (occurrence: None)
  Receive Date: 20051201
  Receipt Date: 20050912
  Transmission Date: 20060501
  Serious: No
  Sender: FDA-Public Use
  Company Number: 2005PV002009

PATIENT
  Age: 73 Year
  Sex: Male
  Weight: 94.3482 kg

DRUGS (9)
  1. BYETTA [Suspect]
     Indication: DIABETES MELLITUS NON-INSULIN-DEPENDENT
     Dosage: SEE IMAGE
     Route: 058
     Dates: start: 20050729, end: 20050829
  2. BYETTA [Suspect]
     Indication: DIABETES MELLITUS NON-INSULIN-DEPENDENT
     Dosage: SEE IMAGE
     Route: 058
     Dates: start: 20050830
  3. AMARYL [Concomitant]
  4. HUMULIN N [Concomitant]
  5. HUMALOG [Concomitant]
  6. TOPROL [Concomitant]
  7. LIPITOR [Concomitant]
  8. DIOVAN [Concomitant]
  9. NIASPAN [Concomitant]

REACTIONS (4)
  - DECREASED APPETITE [None]
  - NAUSEA [None]
  - VOMITING [None]
  - WEIGHT DECREASED [None]
